FAERS Safety Report 15823864 (Version 2)
Quarter: 2019Q1

REPORT INFORMATION
  Report Type: Spontaneous
  Country: JP (occurrence: JP)
  Receive Date: 20190114
  Receipt Date: 20190228
  Transmission Date: 20190417
  Serious: Yes (Hospitalization)
  Sender: FDA-Public Use
  Company Number: JP-ELI_LILLY_AND_COMPANY-JP201901005276

PATIENT
  Age: 49 Year
  Sex: Male

DRUGS (2)
  1. ERBITUX [Suspect]
     Active Substance: CETUXIMAB
     Dosage: 250 DF, WEEKLY (1/W)
     Route: 041
     Dates: start: 2018, end: 201809
  2. ERBITUX [Suspect]
     Active Substance: CETUXIMAB
     Indication: LIP AND/OR ORAL CAVITY CANCER
     Dosage: 400 DF, UNKNOWN
     Route: 041
     Dates: start: 20180806, end: 20180806

REACTIONS (1)
  - Chronic inflammatory demyelinating polyradiculoneuropathy [Recovered/Resolved]

NARRATIVE: CASE EVENT DATE: 20181225
